FAERS Safety Report 14733235 (Version 1)
Quarter: 2018Q2

REPORT INFORMATION
  Report Type: Report from Study
  Country: US (occurrence: US)
  Receive Date: 20180409
  Receipt Date: 20180409
  Transmission Date: 20180711
  Serious: Yes (Hospitalization, Other)
  Sender: FDA-Public Use
  Company Number: US-AUROBINDO-AUR-APL-2018-018246

PATIENT
  Age: 72 Month
  Sex: Male

DRUGS (2)
  1. TRANEXAMIC ACID. [Suspect]
     Active Substance: TRANEXAMIC ACID
     Indication: PROCOAGULANT THERAPY
     Dosage: 30 MILLIGRAM/KILOGRAM (LOADING DOSE)
     Route: 065
  2. TRANEXAMIC ACID. [Suspect]
     Active Substance: TRANEXAMIC ACID
     Dosage: 10 MG/KG/H
     Route: 065

REACTIONS (2)
  - Obstructive airways disorder [Unknown]
  - Seizure [Not Recovered/Not Resolved]
